FAERS Safety Report 6300679-3 (Version None)
Quarter: 2009Q3

REPORT INFORMATION
  Report Type: 
  Country: None (occurrence: None)
  Receive Date: 20090807
  Receipt Date: 20090804
  Transmission Date: 20100115
  Serious: Yes (Hospitalization)
  Sender: FDA-Public Use
  Company Number: US-BIOGENIDEC-2009BI020953

PATIENT
  Age: 50 Year
  Sex: Female

DRUGS (26)
  1. TYSABRI [Suspect]
     Indication: MULTIPLE SCLEROSIS
     Route: 042
     Dates: start: 20080226
  2. BYETTA [Concomitant]
     Route: 048
  3. LEXAPRO [Concomitant]
  4. LYRICA [Concomitant]
  5. CYMBALTA [Concomitant]
  6. PROVIGIL [Concomitant]
  7. DURAMAX PRO [Concomitant]
     Dosage: DOSE UNIT:1 UNKNOWN
  8. ZANAFLEX [Concomitant]
  9. PREMARIN [Concomitant]
  10. METFORMIN HCL [Concomitant]
  11. SINGULAIR [Concomitant]
  12. COZAAR [Concomitant]
  13. LEVOTHYROXINE [Concomitant]
     Route: 048
  14. SIMVASTATIN [Concomitant]
  15. WELLBUTRIN [Concomitant]
  16. COLACE [Concomitant]
     Route: 048
  17. CELEBREX [Concomitant]
  18. ZYRTEC [Concomitant]
  19. K-DUR [Concomitant]
     Route: 048
  20. LASIX [Concomitant]
  21. POTASSIUM CHLORIDE [Concomitant]
  22. MAGNESIUM [Concomitant]
  23. MECLIZINE [Concomitant]
  24. AZMACORT [Concomitant]
     Route: 055
  25. BACLOFEN [Concomitant]
  26. KLONOPIN [Concomitant]

REACTIONS (9)
  - DEHYDRATION [None]
  - ESCHERICHIA URINARY TRACT INFECTION [None]
  - FALL [None]
  - HYPOKALAEMIA [None]
  - HYPONATRAEMIA [None]
  - METABOLIC ENCEPHALOPATHY [None]
  - RESPIRATORY FAILURE [None]
  - SHOCK [None]
  - TOXIC ENCEPHALOPATHY [None]
